FAERS Safety Report 24286423 (Version 1)
Quarter: 2024Q3

REPORT INFORMATION
  Report Type: Report from Study
  Country: US (occurrence: None)
  Receive Date: 20240905
  Receipt Date: 20240905
  Transmission Date: 20241017
  Serious: Yes (Other)
  Sender: ASTRAZENECA
  Company Number: 2024A195845

PATIENT
  Sex: Female
  Weight: 22.7 kg

DRUGS (1)
  1. KOSELUGO [Suspect]
     Active Substance: SELUMETINIB
     Indication: Benign peripheral nerve sheath tumour
     Route: 048

REACTIONS (2)
  - Blood creatine phosphokinase increased [Unknown]
  - Liver function test increased [Unknown]
